FAERS Safety Report 18322197 (Version 2)
Quarter: 2020Q4

REPORT INFORMATION
  Report Type: Spontaneous
  Country: CH (occurrence: CH)
  Receive Date: 20200929
  Receipt Date: 20201103
  Transmission Date: 20210113
  Serious: Yes (Hospitalization)
  Sender: FDA-Public Use
  Company Number: CH-ALK-ABELLO A/S-2020AA002831

PATIENT

DRUGS (2)
  1. ACARIZAX [Suspect]
     Active Substance: DERMATOPHAGOIDES FARINAE\DERMATOPHAGOIDES PTERONYSSINUS
     Indication: PRODUCT USED FOR UNKNOWN INDICATION
     Dosage: 12 SQ-HDM
     Route: 060
     Dates: start: 2020, end: 2020
  2. ACARIZAX [Suspect]
     Active Substance: DERMATOPHAGOIDES FARINAE\DERMATOPHAGOIDES PTERONYSSINUS
     Dosage: 12 UNK
     Dates: start: 2020

REACTIONS (7)
  - Pyrexia [Recovered/Resolved]
  - Oral mucosal blistering [Recovered/Resolved]
  - Oral mucosal erythema [Recovered/Resolved]
  - Coating in mouth [Recovered/Resolved]
  - Gingival blister [Recovered/Resolved]
  - Herpes simplex [Recovered/Resolved]
  - Oral mucosal eruption [Recovering/Resolving]

NARRATIVE: CASE EVENT DATE: 202009
